FAERS Safety Report 5910674-1 (Version None)
Quarter: 2008Q4

REPORT INFORMATION
  Report Type: 
  Country: None (occurrence: None)
  Receive Date: 20081007
  Receipt Date: 20080924
  Transmission Date: 20090506
  Serious: Yes (Hospitalization)
  Sender: FDA-Public Use
  Company Number: GB-ROCHE-587888

PATIENT
  Sex: Female
  Weight: 73 kg

DRUGS (3)
  1. CAPECITABINE [Suspect]
     Dosage: THE PATIENNT RECEIVED CYCLE 1
     Route: 065
     Dates: start: 20080717, end: 20080923
  2. EPIRUBICIN [Suspect]
     Dosage: THE PATIENT RECEIVED CYCLE 4 DATE OF LAST DOSE PRIOR TO SAE: 12 SEP 2008
     Route: 065
     Dates: start: 20080717
  3. PEG-FILGRASTIM [Suspect]
     Dosage: THE PATIENT RECEIVED CYCLE 4 DATE OF LAST DOSE PRIOR TO SAE: 12 SEP 2008
     Route: 065
     Dates: start: 20080717

REACTIONS (4)
  - CHILLS [None]
  - DIAGNOSTIC PROCEDURE [None]
  - DYSURIA [None]
  - STOMATITIS [None]
